FAERS Safety Report 7225933-2 (Version None)
Quarter: 2011Q1

REPORT INFORMATION
  Report Type: 
  Country: None (occurrence: None)
  Receive Date: 20110113
  Receipt Date: 20110105
  Transmission Date: 20110831
  Serious: Yes (Hospitalization)
  Sender: FDA-Public Use
  Company Number: CA-PFIZER INC-2010140120

PATIENT
  Age: 62 Year
  Sex: Male
  Weight: 78.458 kg

DRUGS (14)
  1. BLINDED *NO SUBJECT DRUG [Suspect]
     Indication: DEMENTIA ALZHEIMER'S TYPE
     Dosage: EVERY 2 MONTHS
     Route: 042
     Dates: start: 20090119, end: 20100719
  2. ATACAND [Concomitant]
     Dosage: UNK
     Route: 048
     Dates: start: 20101022
  3. REMINYL [Concomitant]
     Dosage: UNK
     Route: 048
     Dates: start: 20101214
  4. BLINDED PF-04360365 [Suspect]
     Indication: DEMENTIA ALZHEIMER'S TYPE
     Dosage: EVERY 2 MONTHS
     Route: 042
     Dates: start: 20090119, end: 20100719
  5. ZOLOFT [Concomitant]
     Dosage: UNK
     Route: 048
     Dates: start: 20100921
  6. PLACEBO [Suspect]
     Indication: DEMENTIA ALZHEIMER'S TYPE
     Dosage: EVERY 2 MONTHS
     Route: 042
     Dates: start: 20090119, end: 20100719
  7. RISPERDAL [Concomitant]
     Dosage: UNK
     Route: 048
     Dates: start: 20101120
  8. VALPROATE [Suspect]
     Dosage: UNK
     Dates: start: 20101018
  9. CLOBAZAM [Concomitant]
     Dosage: UNK
     Route: 048
     Dates: start: 20101023
  10. SENNA [Concomitant]
     Dosage: UNK
     Route: 048
     Dates: start: 20101022
  11. DILANTIN [Suspect]
     Dosage: UNK
     Dates: end: 20101018
  12. MEMANTINE [Concomitant]
     Dosage: UNK
     Route: 048
     Dates: start: 20100520
  13. FLOMAX [Concomitant]
     Dosage: UNK
     Route: 048
     Dates: start: 20100826
  14. COLACE [Concomitant]
     Dosage: UNK
     Route: 048
     Dates: start: 20101022

REACTIONS (1)
  - DELIRIUM [None]
